FAERS Safety Report 4554062-1 (Version None)
Quarter: 2005Q1

REPORT INFORMATION
  Report Type: 
  Country: None (occurrence: None)
  Receive Date: 20050118
  Receipt Date: 20040511
  Transmission Date: 20050727
  Serious: Yes (Hospitalization, Other)
  Sender: FDA-Public Use
  Company Number: US-MERCK-0405USA00984

PATIENT
  Age: 81 Year
  Sex: Male
  Weight: 73 kg

DRUGS (7)
  1. VIOXX [Suspect]
     Indication: OSTEOARTHRITIS
     Route: 048
     Dates: start: 20000101, end: 20010801
  2. VIOXX [Suspect]
     Route: 048
  3. ARICEPT [Concomitant]
     Indication: MEMORY IMPAIRMENT
     Route: 065
  4. ASPIRIN [Concomitant]
     Indication: CORONARY ARTERY DISEASE
     Route: 065
  5. ALLOPURINOL [Concomitant]
     Indication: GOUT
     Route: 065
  6. VITAMIN E [Concomitant]
     Route: 065
  7. ASCORBIC ACID [Concomitant]
     Route: 065

REACTIONS (45)
  - ABDOMINAL PAIN UPPER [None]
  - ACARODERMATITIS [None]
  - ACUTE PRERENAL FAILURE [None]
  - AGITATION [None]
  - ANGINA UNSTABLE [None]
  - AZOTAEMIA [None]
  - BENIGN PROSTATIC HYPERPLASIA [None]
  - BLADDER OBSTRUCTION [None]
  - BRONCHITIS [None]
  - CARDIAC FAILURE CONGESTIVE [None]
  - CAROTID ARTERY STENOSIS [None]
  - CENTRAL LINE INFECTION [None]
  - CEREBRAL ARTERY OCCLUSION [None]
  - CHEST PAIN [None]
  - CHRONIC OBSTRUCTIVE PULMONARY DISEASE [None]
  - CLAVICLE FRACTURE [None]
  - CONFUSIONAL STATE [None]
  - CONSTIPATION [None]
  - CONTUSION [None]
  - CORONARY ARTERY RESTENOSIS [None]
  - DECREASED APPETITE [None]
  - DERMATITIS CONTACT [None]
  - DIARRHOEA [None]
  - DRESSLER'S SYNDROME [None]
  - DUODENAL ULCER [None]
  - FAECAL OCCULT BLOOD POSITIVE [None]
  - FAECES DISCOLOURED [None]
  - GASTRITIS [None]
  - GASTROINTESTINAL HAEMORRHAGE [None]
  - HYPERBILIRUBINAEMIA [None]
  - HYPERKALAEMIA [None]
  - HYPERLIPIDAEMIA [None]
  - HYPERTENSION [None]
  - MYOCARDIAL INFARCTION [None]
  - OESOPHAGEAL ULCER [None]
  - PERIPHERAL VASCULAR DISORDER [None]
  - RADICULOPATHY [None]
  - RENAL FAILURE [None]
  - RENAL FAILURE ACUTE [None]
  - RENAL FAILURE CHRONIC [None]
  - RESPIRATORY FAILURE [None]
  - SKIN CANDIDA [None]
  - SUBCLAVIAN ARTERY STENOSIS [None]
  - URINARY TRACT INFECTION [None]
  - WEIGHT DECREASED [None]
